FAERS Safety Report 19271573 (Version 9)
Quarter: 2021Q2

REPORT INFORMATION
  Report Type: Report from Study
  Country: None (occurrence: CH)
  Receive Date: 20210519
  Receipt Date: 20210622
  Transmission Date: 20210717
  Serious: Yes (Hospitalization)
  Sender: FDA-Public Use
  Company Number: CH-ABBVIE-21K-151-3909107-00

PATIENT
  Age: 68 Year
  Sex: Female

DRUGS (12)
  1. DUODOPA [Suspect]
     Active Substance: CARBIDOPA\LEVODOPA
     Dosage: MD: 3.5 ML, CRD: 4.3 ML/H, CRN: 1 ML/H, ED: 0 ML, 1 CASSETTE PER DAY.
     Route: 050
     Dates: start: 20210506, end: 202105
  2. DUODOPA [Suspect]
     Active Substance: CARBIDOPA\LEVODOPA
     Dosage: MD: 5.8 ML, CRD: 3.8 ML/H, ED: 1 ML (BLOCKING TIME 3 HOURS)?16 H THERAPY
     Route: 050
     Dates: start: 20210604
  3. DUODOPA [Suspect]
     Active Substance: CARBIDOPA\LEVODOPA
     Dosage: MD: 5 ML, CRD: 3.6 ML/H, CRN: 0 ML/H, ED: 1 ML, 16 H THERAPY
     Route: 050
     Dates: start: 20201204, end: 20201208
  4. DUODOPA [Suspect]
     Active Substance: CARBIDOPA\LEVODOPA
     Dosage: MD: 6 ML, CRD: 3.8 ML/H, CRN: 2.6 ML/H, ED: 1 ML, 1 CASSETTE PER DAY.
     Route: 050
     Dates: start: 20210218, end: 20210315
  5. DUODOPA [Suspect]
     Active Substance: CARBIDOPA\LEVODOPA
     Dosage: MD: 3.5 ML, CRD: 4.0 ML/H, CRN: 1 ML/H, ED: 0 ML. 1 CASSETTE PER DAY.
     Route: 050
     Dates: start: 202105, end: 20210517
  6. DUODOPA [Suspect]
     Active Substance: CARBIDOPA\LEVODOPA
     Indication: PARKINSON^S DISEASE
     Dosage: MD: 5 ML, CRD: 3.8 ML/H, CRN: 0 ML/H, ED: 1 ML,16 H THERAPY
     Route: 050
     Dates: start: 20201117, end: 20201204
  7. DUODOPA [Suspect]
     Active Substance: CARBIDOPA\LEVODOPA
     Dosage: MD: 6 ML, CRD: 3.7 ML/H, CRN: 2.4 ML/H, 1 CASSETTE PER DAY.
     Route: 050
     Dates: start: 20201217, end: 20210202
  8. DUODOPA [Suspect]
     Active Substance: CARBIDOPA\LEVODOPA
     Dosage: MD: 6 ML, CRD: 4.0 ML/H, CRN: 0 ML/H, ED: 1 ML, 1 CASSETTE PER DAY.
     Route: 050
     Dates: start: 20210315, end: 20210506
  9. DUODOPA [Suspect]
     Active Substance: CARBIDOPA\LEVODOPA
     Dosage: MD: 3.8 ML, CRD: 3.8 ML/H, ED: 5.8 ML (BLOCKING TIME 1 HOUR)?16 H THERAPY
     Route: 050
     Dates: start: 20210604, end: 20210604
  10. DUODOPA [Suspect]
     Active Substance: CARBIDOPA\LEVODOPA
     Dosage: MD: 6 ML, CRD: 3.6 ML/H, CRN: 0 ML/H, ED: 1 ML, 16 H THERAPY
     Route: 050
     Dates: start: 20201208, end: 20201217
  11. DUODOPA [Suspect]
     Active Substance: CARBIDOPA\LEVODOPA
     Dosage: MD: 6 ML, CRD: 3.8 ML/H, CRN: 2.5 ML/H, ED: 1 ML, 1 CASSETTE PER DAY.
     Route: 050
     Dates: start: 20210202, end: 20210218
  12. DUODOPA [Suspect]
     Active Substance: CARBIDOPA\LEVODOPA
     Dosage: MD: 6 ML, CRD: 4.1 ML/H, CRN: 1 ML/H, ED: 1 ML. 1 CASSETTE PER DAY.
     Route: 050
     Dates: start: 20210517, end: 2021

REACTIONS (13)
  - Overdose [Recovered/Resolved]
  - Musculoskeletal disorder [Not Recovered/Not Resolved]
  - Loss of personal independence in daily activities [Unknown]
  - Screaming [Unknown]
  - Hallucination [Unknown]
  - Mental disorder [Not Recovered/Not Resolved]
  - Freezing phenomenon [Unknown]
  - Nightmare [Not Recovered/Not Resolved]
  - Back pain [Unknown]
  - Partner stress [Unknown]
  - Incorrect dose administered [Recovered/Resolved]
  - Mobility decreased [Not Recovered/Not Resolved]
  - Dyskinesia [Unknown]

NARRATIVE: CASE EVENT DATE: 20210603
